FAERS Safety Report 11031713 (Version 3)
Quarter: 2016Q2

REPORT INFORMATION
  Report Type: Spontaneous
  Country: US (occurrence: US)
  Receive Date: 20150415
  Receipt Date: 20160628
  Transmission Date: 20160815
  Serious: Yes (Hospitalization, Other)
  Sender: FDA-Public Use
  Company Number: US-009507513-1504USA005267

PATIENT
  Sex: Male

DRUGS (1)
  1. PROPECIA [Suspect]
     Active Substance: FINASTERIDE
     Indication: ALOPECIA
     Dosage: 1 MG, QD
     Route: 048
     Dates: start: 19990408, end: 20000221

REACTIONS (21)
  - Umbilical hernia [Unknown]
  - Cholecystectomy [Unknown]
  - Loss of libido [Not Recovered/Not Resolved]
  - Penile size reduced [Not Recovered/Not Resolved]
  - Adverse drug reaction [Unknown]
  - Suicidal ideation [Not Recovered/Not Resolved]
  - Brain injury [Not Recovered/Not Resolved]
  - Ureterolithiasis [Unknown]
  - Viral infection [Unknown]
  - Headache [Unknown]
  - Semen volume decreased [Unknown]
  - Ureterolithiasis [Unknown]
  - Endocrine disorder [Not Recovered/Not Resolved]
  - Groin pain [Not Recovered/Not Resolved]
  - Dehydration [Unknown]
  - Testicular atrophy [Not Recovered/Not Resolved]
  - Nephrolithiasis [Unknown]
  - Erectile dysfunction [Recovering/Resolving]
  - Sexual dysfunction [Recovering/Resolving]
  - Nervous system disorder [Not Recovered/Not Resolved]
  - Penis injury [Not Recovered/Not Resolved]

NARRATIVE: CASE EVENT DATE: 199908
